FAERS Safety Report 23907205 (Version 1)
Quarter: 2024Q2

REPORT INFORMATION
  Report Type: Spontaneous
  Country: PL (occurrence: PL)
  Receive Date: 20240528
  Receipt Date: 20240528
  Transmission Date: 20240716
  Serious: Yes (Hospitalization, Other)
  Sender: FDA-Public Use
  Company Number: PL-GILEAD-2024-0673707

PATIENT
  Age: 32 Year
  Sex: Female

DRUGS (6)
  1. TRODELVY [Suspect]
     Active Substance: SACITUZUMAB GOVITECAN-HZIY
     Indication: Triple negative breast cancer
     Dosage: 10 MG/KG (750 MG)
     Route: 042
     Dates: start: 20230221
  2. TRODELVY [Suspect]
     Active Substance: SACITUZUMAB GOVITECAN-HZIY
     Dosage: 10 MG/KG
     Route: 042
     Dates: start: 202305, end: 202307
  3. CLEMASTINE [Concomitant]
     Active Substance: CLEMASTINE
  4. ONDANSETRON [Concomitant]
     Active Substance: ONDANSETRON
  5. DEXAMETHASONE [Concomitant]
     Active Substance: DEXAMETHASONE
  6. FAMOTIDINE [Concomitant]
     Active Substance: FAMOTIDINE

REACTIONS (8)
  - Anaemia [Unknown]
  - Thrombocytopenia [Unknown]
  - Metastases to bone [Unknown]
  - Disease progression [Unknown]
  - Pancytopenia [Unknown]
  - Staphylococcal sepsis [Unknown]
  - Cytopenia [Unknown]
  - Paresis [Unknown]

NARRATIVE: CASE EVENT DATE: 20230801
